FAERS Safety Report 8168022-5 (Version None)
Quarter: 2012Q1

REPORT INFORMATION
  Report Type: 
  Country: None (occurrence: None)
  Receive Date: 20120227
  Receipt Date: 20120214
  Transmission Date: 20120608
  Serious: Yes (Hospitalization, Other)
  Sender: FDA-Public Use
  Company Number: PHHY2012ES014600

PATIENT
  Age: 34 Year
  Sex: Female

DRUGS (1)
  1. IMATINIB MESYLATE [Suspect]
     Indication: CHRONIC MYELOID LEUKAEMIA
     Dosage: 400 MG/DAY

REACTIONS (11)
  - HEPATIC ENCEPHALOPATHY [None]
  - HEPATIC NECROSIS [None]
  - ASTHENIA [None]
  - VOMITING [None]
  - DEFICIENCY OF BILE SECRETION [None]
  - HEPATITIS FULMINANT [None]
  - CHOLURIA [None]
  - DRUG INEFFECTIVE [None]
  - NAUSEA [None]
  - CHOLANGITIS [None]
  - CHOLESTASIS [None]
